FAERS Safety Report 11681808 (Version 1)
Quarter: 2015Q4

REPORT INFORMATION
  Report Type: Spontaneous
  Country: US (occurrence: None)
  Receive Date: 20151028
  Receipt Date: 20151028
  Transmission Date: 20160304
  Serious: Yes (Other)
  Sender: FDA-Public Use
  Company Number: None

PATIENT
  Age: 68 Year
  Sex: Female
  Weight: 80.74 kg

DRUGS (7)
  1. CYMBALTA [Suspect]
     Active Substance: DULOXETINE HYDROCHLORIDE
     Indication: NEURALGIA
     Route: 048
     Dates: start: 20150601, end: 20151014
  2. LOVASTATIN. [Concomitant]
     Active Substance: LOVASTATIN
  3. ZANTAC [Concomitant]
     Active Substance: RANITIDINE HYDROCHLORIDE
  4. GABAPENTIN. [Concomitant]
     Active Substance: GABAPENTIN
  5. VITAMIN D [Concomitant]
     Active Substance: CHOLECALCIFEROL
  6. ADVAIR HFA [Concomitant]
     Active Substance: FLUTICASONE PROPIONATE\SALMETEROL XINAFOATE
  7. LOSARTIN [Concomitant]
     Active Substance: LOSARTAN

REACTIONS (6)
  - Anger [None]
  - Neuralgia [None]
  - Pain [None]
  - Drug withdrawal syndrome [None]
  - Night sweats [None]
  - Confusional state [None]

NARRATIVE: CASE EVENT DATE: 20151014
